FAERS Safety Report 8514217-8 (Version None)
Quarter: 2012Q3

REPORT INFORMATION
  Report Type: 
  Country: None (occurrence: None)
  Receive Date: 20120717
  Receipt Date: 20120712
  Transmission Date: 20120928
  Serious: Yes (Other)
  Sender: FDA-Public Use
  Company Number: US-BAYER-2012-070366

PATIENT
  Age: 18 Year
  Sex: Female
  Weight: 70.295 kg

DRUGS (8)
  1. YAZ [Suspect]
     Indication: DYSMENORRHOEA
  2. DROSPIRENONE AND ETHINYL ESTRADIOL [Suspect]
  3. BEYAZ [Suspect]
  4. VICODIN [Concomitant]
  5. DROSPIRENONE AND ETHINYL ESTRADIOL [Suspect]
  6. YASMIN [Suspect]
  7. YAZ [Suspect]
     Indication: ACNE
  8. NAPROXEN [Concomitant]

REACTIONS (1)
  - DEEP VEIN THROMBOSIS [None]
